FAERS Safety Report 4616643-6 (Version None)
Quarter: 2005Q1

REPORT INFORMATION
  Report Type: 
  Country: None (occurrence: None)
  Receive Date: 20050318
  Receipt Date: 20050302
  Transmission Date: 20050727
  Serious: Yes (Death, Other)
  Sender: FDA-Public Use
  Company Number: 2005BI004740

PATIENT
  Sex: Female

DRUGS (5)
  1. AVONEX [Suspect]
     Indication: MULTIPLE SCLEROSIS
     Dosage: QW;IM
     Route: 030
     Dates: start: 20030101
  2. NATALIZUMAB [Suspect]
     Indication: MULTIPLE SCLEROSIS
     Dosage: QM; IV
     Route: 030
     Dates: start: 20050101
  3. CYTOXAN [Concomitant]
  4. NOVANTRONE [Concomitant]
  5. BETASERON [Concomitant]

REACTIONS (1)
  - PANCYTOPENIA [None]
